FAERS Safety Report 8034789 (Version 3)
Quarter: 2012Q4

REPORT INFORMATION
  Report Type: Report from Study
  Country: DE (occurrence: DE)
  Receive Date: 20110714
  Receipt Date: 20121219
  Transmission Date: 20130627
  Serious: No
  Sender: FDA-Public Use
  Company Number: DE-JNJFOC-20110602968

PATIENT
  Sex: Female

DRUGS (2)
  1. PALEXIA RETARD [Suspect]
     Indication: PRODUCT USED FOR UNKNOWN INDICATION
     Route: 065
     Dates: start: 201011, end: 20110104
  2. PALEXIA RETARD [Suspect]
     Indication: PRODUCT USED FOR UNKNOWN INDICATION
     Route: 065
     Dates: start: 20101117, end: 201011

REACTIONS (1)
  - Drug withdrawal syndrome [Unknown]
